FAERS Safety Report 5255847-9 (Version None)
Quarter: 2007Q1

REPORT INFORMATION
  Report Type: 
  Country: None (occurrence: None)
  Receive Date: 20070301
  Receipt Date: 20070131
  Transmission Date: 20070707
  Serious: No
  Sender: FDA-Public Use
  Company Number: 2007EU000303

PATIENT
  Age: 8 Year
  Sex: Male

DRUGS (1)
  1. PROTOPIC [Suspect]
     Indication: ECZEMA
     Dosage: UNKNOWN/D, TOPICAL
     Route: 061
     Dates: start: 20040801

REACTIONS (1)
  - LENTIGO [None]
